FAERS Safety Report 24136257 (Version 3)
Quarter: 2024Q3

REPORT INFORMATION
  Report Type: Report from Study
  Country: US (occurrence: US)
  Receive Date: 20240725
  Receipt Date: 20240918
  Transmission Date: 20241017
  Serious: No
  Sender: BIOVITRUM
  Company Number: US-BIOVITRUM-2024-US-010156

PATIENT
  Age: 64 Year
  Sex: Female

DRUGS (4)
  1. KINERET [Suspect]
     Active Substance: ANAKINRA
     Indication: Rheumatoid arthritis
     Dosage: DAILY
     Route: 058
     Dates: start: 20191126
  2. TYLENOL [Suspect]
     Active Substance: ACETAMINOPHEN
     Indication: Product used for unknown indication
  3. ASPIRIN [Suspect]
     Active Substance: ASPIRIN
     Indication: Product used for unknown indication
  4. ADVIL [Suspect]
     Active Substance: IBUPROFEN\IBUPROFEN SODIUM
     Indication: Product used for unknown indication

REACTIONS (12)
  - Arthritis [Unknown]
  - Insomnia [Unknown]
  - Bladder disorder [Unknown]
  - Drug ineffective [Unknown]
  - Asthenia [Unknown]
  - Pain [Unknown]
  - Blood glucose abnormal [Unknown]
  - Glycosylated haemoglobin increased [Recovered/Resolved]
  - Loss of personal independence in daily activities [Unknown]
  - General physical health deterioration [Unknown]
  - Emotional disorder [Unknown]
  - Intentional dose omission [Unknown]
